FAERS Safety Report 5746144-3 (Version None)
Quarter: 2008Q2

REPORT INFORMATION
  Report Type: 
  Country: None (occurrence: None)
  Receive Date: 20080520
  Receipt Date: 20080506
  Transmission Date: 20081010
  Serious: Yes (Hospitalization)
  Sender: FDA-Public Use
  Company Number: 2008-00618

PATIENT
  Age: 60 Year
  Sex: Female
  Weight: 82 kg

DRUGS (7)
  1. VELCADE [Suspect]
     Indication: T-CELL LYMPHOMA
     Dosage: 2.40 MG, INTRAVENOUS
     Route: 042
     Dates: start: 20071106, end: 20071228
  2. CYCLOPHOSPHAMIDE [Suspect]
     Indication: T-CELL LYMPHOMA
     Dosage: 2220.00 MG, INTRAVENOUS
     Route: 042
     Dates: start: 20071106, end: 20071224
  3. DOXORUBICIN HCL [Suspect]
     Indication: T-CELL LYMPHOMA
     Dosage: 140.00 MG, INTRAVENOUS
     Route: 042
     Dates: start: 20071106, end: 20071228
  4. ELDISINE [Suspect]
     Indication: T-CELL LYMPHOMA
     Dosage: 3.70 MG, INTRAVENOUS
     Route: 042
     Dates: start: 20071106, end: 20071228
  5. BLEOMYCIN SULFATE [Suspect]
     Indication: T-CELL LYMPHOMA
     Dosage: 10.00 MG, INTRAVENOUS
     Route: 042
     Dates: start: 20071106, end: 20071228
  6. PREDNISONE TAB [Suspect]
     Indication: T-CELL LYMPHOMA
     Dosage: 70.00 MG
     Dates: start: 20071106, end: 20071228
  7. GRANOCYTE 13-34(LENOGRASTIM) INJECTION [Suspect]
     Indication: T-CELL LYMPHOMA
     Dates: start: 20071106, end: 20071230

REACTIONS (3)
  - EMBOLISM [None]
  - PHLEBITIS [None]
  - PULMONARY INFARCTION [None]
